FAERS Safety Report 5878133-2 (Version None)
Quarter: 2008Q3

REPORT INFORMATION
  Report Type: 
  Country: None (occurrence: None)
  Receive Date: 20080911
  Receipt Date: 20080909
  Transmission Date: 20090109
  Serious: Yes (Life-Threatening, Hospitalization, Other)
  Sender: FDA-Public Use
  Company Number: US-CELGENEUS-163-21880-08080941

PATIENT
  Sex: Female

DRUGS (1)
  1. REVLIMID [Suspect]
     Indication: MULTIPLE MYELOMA
     Route: 048
     Dates: start: 20080625

REACTIONS (4)
  - DIVERTICULITIS [None]
  - HAEMORRHAGE [None]
  - INTESTINAL ISCHAEMIA [None]
  - MESENTERIC OCCLUSION [None]
